FAERS Safety Report 18314919 (Version 1)
Quarter: 2020Q3

REPORT INFORMATION
  Report Type: Report from Study
  Country: JP (occurrence: JP)
  Receive Date: 20200925
  Receipt Date: 20200925
  Transmission Date: 20201103
  Serious: Yes (Other)
  Sender: FDA-Public Use
  Company Number: JP-PFIZER INC-2020370639

PATIENT
  Age: 69 Year
  Sex: Male

DRUGS (3)
  1. SIVELESTAT SODIUM TETRAHYDRATE [Concomitant]
     Indication: INTERSTITIAL LUNG DISEASE
     Dosage: UNK
  2. METHYLPREDNISOLONE SODIUM SUCCINATE. [Suspect]
     Active Substance: METHYLPREDNISOLONE SODIUM SUCCINATE
     Dosage: RE?PULSE THERAPY
  3. METHYLPREDNISOLONE SODIUM SUCCINATE. [Suspect]
     Active Substance: METHYLPREDNISOLONE SODIUM SUCCINATE
     Indication: INTERSTITIAL LUNG DISEASE
     Dosage: DAILY (GREATER THAN OR EQUAL TO 500 MG/DAY FOR 3 DAYS

REACTIONS (1)
  - Pneumonia [Unknown]
